FAERS Safety Report 5366109-3 (Version None)
Quarter: 2007Q2

REPORT INFORMATION
  Report Type: 
  Country: None (occurrence: None)
  Receive Date: 20070611
  Receipt Date: 20061027
  Transmission Date: 20071010
  Serious: Yes (Death)
  Sender: FDA-Public Use
  Company Number: USA-2006-0025156

PATIENT
  Age: 42 Year
  Sex: Female
  Weight: 45.4 kg

DRUGS (10)
  1. OXYCODONE HCL [Suspect]
     Indication: DRUG USE FOR UNKNOWN INDICATION
     Dosage: MG
  2. CODEINE SUL TAB [Suspect]
     Indication: DRUG USE FOR UNKNOWN INDICATION
  3. ACETAMINOPHEN [Suspect]
     Indication: DRUG USE FOR UNKNOWN INDICATION
  4. COMPAZINE [Suspect]
     Indication: DRUG USE FOR UNKNOWN INDICATION
  5. PROCHLORPERAZINE MALEATE [Suspect]
     Indication: DRUG USE FOR UNKNOWN INDICATION
  6. BUTABARBITAL [Suspect]
     Indication: DRUG USE FOR UNKNOWN INDICATION
  7. TRAZODONE HCL [Suspect]
     Indication: DRUG USE FOR UNKNOWN INDICATION
  8. DIPHENHYDRAMINE HCL [Suspect]
     Indication: DRUG USE FOR UNKNOWN INDICATION
  9. METAXALONE [Suspect]
     Indication: DRUG USE FOR UNKNOWN INDICATION
  10. NICOTINE [Suspect]
     Indication: DRUG USE FOR UNKNOWN INDICATION

REACTIONS (1)
  - MULTIPLE DRUG OVERDOSE ACCIDENTAL [None]
